FAERS Safety Report 25675169 (Version 1)
Quarter: 2025Q3

REPORT INFORMATION
  Report Type: Spontaneous
  Country: EU (occurrence: EU)
  Receive Date: 20250813
  Receipt Date: 20250813
  Transmission Date: 20251020
  Serious: Yes (Congenital Anomaly, Other)
  Sender: RANBAXY
  Company Number: EU-SUN PHARMACEUTICAL INDUSTRIES LTD-2025RR-521826

PATIENT
  Sex: Female
  Weight: 2.235 kg

DRUGS (3)
  1. SERTRALINE [Suspect]
     Active Substance: SERTRALINE HYDROCHLORIDE
     Indication: Depression
     Dosage: 25 MILLIGRAM, DAILY, 25 MG/DAY, THROUGHOUT PREGNANCY
     Route: 064
     Dates: start: 201810, end: 201907
  2. CYTOTEC [Concomitant]
     Active Substance: MISOPROSTOL
     Indication: Labour induction
     Route: 064
  3. FOLIC ACID [Concomitant]
     Active Substance: FOLIC ACID
     Indication: Prophylaxis of neural tube defect
     Route: 064
     Dates: start: 201810, end: 201907

REACTIONS (3)
  - Small for dates baby [Recovered/Resolved]
  - Microcephaly [Unknown]
  - Foetal exposure during pregnancy [Unknown]
